FAERS Safety Report 17988611 (Version 1)
Quarter: 2020Q3

REPORT INFORMATION
  Report Type: Spontaneous
  Country: US (occurrence: US)
  Receive Date: 20200707
  Receipt Date: 20200707
  Transmission Date: 20201103
  Serious: Yes (Hospitalization)
  Sender: FDA-Public Use
  Company Number: None

PATIENT
  Sex: Male
  Weight: 114.3 kg

DRUGS (1)
  1. DAUNORUBICIN [Suspect]
     Active Substance: DAUNORUBICIN
     Dates: end: 20200626

REACTIONS (12)
  - Colitis [None]
  - Bladder hypertrophy [None]
  - Venous thrombosis [None]
  - Febrile neutropenia [None]
  - Diarrhoea [None]
  - Bladder disorder [None]
  - Complication associated with device [None]
  - Condition aggravated [None]
  - Clostridium difficile infection [None]
  - Appetite disorder [None]
  - Cystitis [None]
  - Sepsis [None]

NARRATIVE: CASE EVENT DATE: 20200602
